FAERS Safety Report 9297633 (Version 1)
Quarter: 2013Q2

REPORT INFORMATION
  Report Type: Spontaneous
  Country: US (occurrence: None)
  Receive Date: 20130517
  Receipt Date: 20130517
  Transmission Date: 20140414
  Serious: Yes (Disabling)
  Sender: FDA-Public Use
  Company Number: None

PATIENT
  Age: 48 Year
  Sex: Female
  Weight: 52.16 kg

DRUGS (2)
  1. AVELOX/MOXIFLOXACIN [Suspect]
     Indication: PNEUMONIA
     Dosage: EVERY 24 HOURS
     Route: 041
     Dates: start: 20120416, end: 20120418
  2. AVELOX [Suspect]
     Indication: PNEUMONIA
     Dosage: -1 TABLET
     Route: 048
     Dates: start: 20120419, end: 20120428

REACTIONS (5)
  - Iritis [None]
  - Uveitis [None]
  - Iris atrophy [None]
  - Iris transillumination defect [None]
  - Impaired driving ability [None]
